FAERS Safety Report 7237207-4 (Version None)
Quarter: 2011Q1

REPORT INFORMATION
  Report Type: 
  Country: None (occurrence: None)
  Receive Date: 20110121
  Receipt Date: 20110112
  Transmission Date: 20110831
  Serious: Yes (Hospitalization)
  Sender: FDA-Public Use
  Company Number: US-SOLVAY-00211000351

PATIENT
  Age: 673 Month
  Sex: Male
  Weight: 85.454 kg

DRUGS (6)
  1. ANDROGEL [Suspect]
     Indication: BLOOD TESTOSTERONE DECREASED
     Dosage: DAILY DOSE:  UNKNOWN
     Route: 062
     Dates: end: 20100501
  2. ULTRAM [Concomitant]
     Indication: PRODUCT USED FOR UNKNOWN INDICATION
     Dosage: DAILY DOSE:  UNKNOWN
     Route: 065
  3. COUMADIN [Concomitant]
     Indication: PRODUCT USED FOR UNKNOWN INDICATION
     Dosage: DAILY DOSE:  UNKNOWN
     Route: 065
     Dates: start: 20100501
  4. MORPHINE PUMP [Concomitant]
     Indication: BACK PAIN
     Dosage: DAILY DOSE:  UNKNOWN, AS USED: 32, FREQUENCY: Q 24
     Route: 065
  5. DIAZEPAM [Concomitant]
     Indication: PRODUCT USED FOR UNKNOWN INDICATION
     Dosage: DAILY DOSE:  UNKNOWN
     Route: 065
  6. DILAUDID [Concomitant]
     Indication: PRODUCT USED FOR UNKNOWN INDICATION
     Dosage: DAILY DOSE: 4.4 MILLIGRAM(S)
     Route: 065

REACTIONS (3)
  - DRUG INEFFECTIVE [None]
  - PULMONARY EMBOLISM [None]
  - CEREBRAL HAEMATOMA [None]
